FAERS Safety Report 7495286-3 (Version None)
Quarter: 2011Q2

REPORT INFORMATION
  Report Type: 
  Country: None (occurrence: None)
  Receive Date: 20110523
  Receipt Date: 20110519
  Transmission Date: 20111010
  Serious: Yes (Hospitalization, Other)
  Sender: FDA-Public Use
  Company Number: IL-BRISTOL-MYERS SQUIBB COMPANY-15368087

PATIENT
  Age: 61 Year
  Sex: Female

DRUGS (3)
  1. CISPLATIN [Suspect]
     Indication: GASTROOESOPHAGEAL CANCER
     Dosage: DAY 1 OF CYCLE.MOST RECENT INF ON 25OCT10.
     Route: 042
     Dates: start: 20100523
  2. CETUXIMAB [Suspect]
     Indication: GASTROOESOPHAGEAL CANCER
     Dosage: CETUXIMAB 5MG/ML.MOST RECENT INF ON 25OCT10.
     Route: 042
     Dates: start: 20100523
  3. XELODA [Suspect]
     Indication: GASTROOESOPHAGEAL CANCER
     Dosage: CAPECITABINE TABLET MOST RECENT DOSE:670 MG/M2 ON 27OCT10;ON DAY 1-15
     Route: 048
     Dates: start: 20100523, end: 20101027

REACTIONS (1)
  - ABDOMINAL PAIN [None]
